FAERS Safety Report 16744467 (Version 1)
Quarter: 2019Q3

REPORT INFORMATION
  Report Type: Spontaneous
  Country: PL (occurrence: PL)
  Receive Date: 20190827
  Receipt Date: 20190827
  Transmission Date: 20191005
  Serious: Yes (Other)
  Sender: FDA-Public Use
  Company Number: PL-TEVA-2019-PL-1098337

PATIENT
  Age: 68 Year
  Sex: Male

DRUGS (2)
  1. GEMCITABINE. [Suspect]
     Active Substance: GEMCITABINE
     Indication: PANCREATIC CARCINOMA
     Dosage: ON DAYS 1, 8 AND 15; WITH 30% DOSE REDUCTION; FURTHER REDUCED TO 50% OF THE DUE DOSE
     Route: 065
  2. PANCREATINE [Concomitant]
     Indication: PANCREATIC FAILURE
     Route: 065

REACTIONS (4)
  - Thrombocytopenia [Unknown]
  - Toxicity to various agents [Unknown]
  - Anaemia [Unknown]
  - Neutropenia [Unknown]
